FAERS Safety Report 8244811-3 (Version None)
Quarter: 2012Q1

REPORT INFORMATION
  Report Type: 
  Country: None (occurrence: None)
  Receive Date: 20120329
  Receipt Date: 20110503
  Transmission Date: 20120608
  Serious: No
  Sender: FDA-Public Use
  Company Number: US-MYLANLABS-2011S1009270

PATIENT
  Age: 57 Year
  Sex: Female

DRUGS (3)
  1. FENTANYL-100 [Suspect]
     Indication: ULCER
     Dosage: Q72H
     Route: 062
     Dates: start: 20110101
  2. VALIUM [Concomitant]
  3. PERCOCET [Concomitant]
     Dosage: 10MG/325MG

REACTIONS (2)
  - DRUG WITHDRAWAL SYNDROME [None]
  - LABIA ENLARGED [None]
